FAERS Safety Report 17299071 (Version 2)
Quarter: 2020Q3

REPORT INFORMATION
  Report Type: Spontaneous
  Country: US (occurrence: US)
  Receive Date: 20200122
  Receipt Date: 20200716
  Transmission Date: 20201102
  Serious: No
  Sender: FDA-Public Use
  Company Number: US-MYLANLABS-2020M1003636

PATIENT
  Sex: Female
  Weight: 57 kg

DRUGS (1)
  1. CLOBETASOL PROPIONATE FOAM [Suspect]
     Active Substance: CLOBETASOL PROPIONATE
     Indication: PRURITUS
     Dosage: PRN
     Route: 003

REACTIONS (4)
  - Wrong technique in product usage process [Not Recovered/Not Resolved]
  - Wrong product administered [Unknown]
  - Off label use [Unknown]
  - Accidental exposure to product [Unknown]
